FAERS Safety Report 5249220-7 (Version None)
Quarter: 2007Q1

REPORT INFORMATION
  Report Type: 
  Country: None (occurrence: None)
  Receive Date: 20070223
  Receipt Date: 20070213
  Transmission Date: 20070707
  Serious: Yes (Life-Threatening, Hospitalization)
  Sender: FDA-Public Use
  Company Number: 2007SP002856

PATIENT
  Age: 79 Year
  Sex: Female
  Weight: 55 kg

DRUGS (2)
  1. INTRON A [Suspect]
     Indication: MULTIPLE MYELOMA
     Dosage: 9 MIU;QW;SC
     Route: 058
     Dates: start: 20030501, end: 20070201
  2. THALIDOMIDE [Suspect]
     Indication: MULTIPLE MYELOMA
     Dosage: 100 MG; PO
     Route: 048
     Dates: start: 20020501, end: 20070201

REACTIONS (4)
  - ATRIAL FIBRILLATION [None]
  - BRONCHOPNEUMONIA [None]
  - PERICARDITIS URAEMIC [None]
  - RENAL FAILURE ACUTE [None]
